FAERS Safety Report 8341368-3 (Version None)
Quarter: 2012Q2

REPORT INFORMATION
  Report Type: 
  Country: None (occurrence: None)
  Receive Date: 20120507
  Receipt Date: 20120503
  Transmission Date: 20120825
  Serious: Yes (Other)
  Sender: FDA-Public Use
  Company Number: US-JNJFOC-20120502095

PATIENT
  Age: 88 Year
  Sex: Female

DRUGS (1)
  1. XARELTO [Suspect]
     Indication: ATRIAL FIBRILLATION
     Route: 048
     Dates: start: 20110101

REACTIONS (5)
  - PRURITUS [None]
  - CHROMATURIA [None]
  - URINARY TRACT INFECTION [None]
  - ASTHENIA [None]
  - FATIGUE [None]
